FAERS Safety Report 9999259 (Version 1)
Quarter: 2014Q1

REPORT INFORMATION
  Report Type: Spontaneous
  Country: DE (occurrence: None)
  Receive Date: 20140310
  Receipt Date: 20140310
  Transmission Date: 20141002
  Serious: Yes (Congenital Anomaly)
  Sender: FDA-Public Use
  Company Number: D0083058A

PATIENT
  Age: 0 Day
  Sex: Male
  Weight: 4.08 kg

DRUGS (6)
  1. PAROXETINE HYDROCHLORIDE [Suspect]
     Indication: DEPRESSION
     Route: 064
     Dates: start: 20120818, end: 20130524
  2. THYROXINE SODIUM [Concomitant]
  3. ESOMEPRAZOLE [Concomitant]
  4. VITAMIN B12+FOLIC ACID [Concomitant]
  5. IODINE [Concomitant]
  6. SEASONAL TRIVAL INFLU DRESD [Concomitant]

REACTIONS (3)
  - Pulmonary artery stenosis congenital [None]
  - Feeding disorder neonatal [None]
  - Maternal drugs affecting foetus [None]
